FAERS Safety Report 5031532-3 (Version None)
Quarter: 2006Q2

REPORT INFORMATION
  Report Type: 
  Country: None (occurrence: None)
  Receive Date: 20060621
  Receipt Date: 20060316
  Transmission Date: 20061013
  Serious: Yes (Hospitalization)
  Sender: FDA-Public Use
  Company Number: PHBS2006JP04209

PATIENT
  Age: 74 Year
  Sex: Male
  Weight: 60 kg

DRUGS (7)
  1. GLEEVEC [Suspect]
     Indication: CHRONIC MYELOID LEUKAEMIA
     Dosage: 400 MG/D
     Route: 048
     Dates: start: 20060411, end: 20060419
  2. GLEEVEC [Suspect]
     Dosage: 400 MG/D
     Route: 048
     Dates: start: 20051201, end: 20060316
  3. TAKEPRON [Concomitant]
     Indication: GASTRIC ULCER
     Dosage: 30 MG/D
     Route: 048
     Dates: start: 20030201
  4. SELBEX [Concomitant]
     Indication: GASTRIC ULCER
     Dosage: 100 MG/D
     Route: 048
     Dates: start: 20030201
  5. ALDACTONE [Concomitant]
     Indication: HYPERALDOSTERONISM
     Dosage: 25 MG/D
     Route: 048
     Dates: start: 20030201
  6. FLORINEF [Concomitant]
     Indication: HYPERALDOSTERONISM
     Dosage: 0.1 MG/D
     Route: 048
     Dates: start: 20030201
  7. PLETAL [Concomitant]
     Indication: TRANSIENT ISCHAEMIC ATTACK
     Dosage: 200 MG/D
     Route: 048
     Dates: start: 20060202

REACTIONS (8)
  - ARTHROPATHY [None]
  - CONJUNCTIVITIS [None]
  - HYPERAESTHESIA [None]
  - LIMB DISCOMFORT [None]
  - NEUROPATHY PERIPHERAL [None]
  - OEDEMA PERIPHERAL [None]
  - PAIN IN EXTREMITY [None]
  - PITTING OEDEMA [None]
